FAERS Safety Report 10618883 (Version 1)
Quarter: 2014Q4

REPORT INFORMATION
  Report Type: Spontaneous
  Country: JP (occurrence: None)
  Receive Date: 20141125
  Receipt Date: 20141125
  Transmission Date: 20150529
  Serious: Yes (Other)
  Sender: FDA-Public Use
  Company Number: A201202030

PATIENT
  Age: 47 Year
  Sex: Male

DRUGS (2)
  1. ADEFOVIR DIPIVOXIL. [Suspect]
     Active Substance: ADEFOVIR DIPIVOXIL
     Indication: CHRONIC HEPATITIS B
     Route: 048
     Dates: start: 20050119, end: 201108
  2. LAMIVUDINE (LAMIVUDINE) TABLET [Suspect]
     Active Substance: LAMIVUDINE
     Indication: CHRONIC HEPATITIS B
     Route: 048
     Dates: start: 20001222

REACTIONS (17)
  - Renal tubular acidosis [None]
  - Decreased activity [None]
  - Pain [None]
  - Bone scan abnormal [None]
  - Ankylosing spondylitis [None]
  - Hypophosphataemia [None]
  - Renal tubular disorder [None]
  - Blood alkaline phosphatase increased [None]
  - Bone pain [None]
  - Body height decreased [None]
  - Weight decreased [None]
  - Gait disturbance [None]
  - Fracture [None]
  - Osteomalacia [None]
  - Fanconi syndrome [None]
  - Renal disorder [None]
  - Nephrolithiasis [None]

NARRATIVE: CASE EVENT DATE: 200705
